FAERS Safety Report 5646432-5 (Version None)
Quarter: 2008Q1

REPORT INFORMATION
  Report Type: 
  Country: None (occurrence: None)
  Receive Date: 20080228
  Receipt Date: 20080228
  Transmission Date: 20080703
  Serious: No
  Sender: FDA-Public Use
  Company Number: None

PATIENT
  Age: 45 Year
  Sex: Female
  Weight: 63.5036 kg

DRUGS (2)
  1. ZICAM NASAL COLD REMEDY [Suspect]
     Indication: ANOSMIA
     Dosage: ONE SQUIRT UP EACH NOSTRIL 1X INHAL
     Route: 055
     Dates: start: 20080222, end: 20080223
  2. PREDNISONE STEROID PACK [Concomitant]

REACTIONS (3)
  - AGEUSIA [None]
  - ANOSMIA [None]
  - VIRAL INFECTION [None]
